FAERS Safety Report 15292876 (Version 1)
Quarter: 2018Q3

REPORT INFORMATION
  Report Type: Spontaneous
  Country: TW (occurrence: TW)
  Receive Date: 20180819
  Receipt Date: 20180819
  Transmission Date: 20181010
  Serious: Yes (Hospitalization)
  Sender: FDA-Public Use
  Company Number: TW-AMGEN-TWNSP2018112750

PATIENT
  Age: 67 Year
  Sex: Female

DRUGS (8)
  1. RIVOTRIL [Concomitant]
     Active Substance: CLONAZEPAM
     Dosage: 2 DF, QN
     Route: 048
  2. CRESTOR [Concomitant]
     Active Substance: ROSUVASTATIN CALCIUM
     Dosage: 1 DF, QD
     Route: 048
  3. PLAQUENIL [Concomitant]
     Active Substance: HYDROXYCHLOROQUINE SULFATE
     Dosage: 1 DF, BID
     Route: 048
  4. ENBREL [Suspect]
     Active Substance: ETANERCEPT
     Indication: RHEUMATOID ARTHRITIS
     Dosage: 25 MG, BIW
     Route: 058
     Dates: start: 20090424, end: 20180808
  5. MICARDIS [Concomitant]
     Active Substance: TELMISARTAN
     Dosage: 1 DF, BID
     Route: 048
  6. CELEBREX [Concomitant]
     Active Substance: CELECOXIB
     Dosage: 1 DF, QOD
     Route: 048
  7. CARDOLOL [Concomitant]
     Active Substance: PROPRANOLOL HYDROCHLORIDE
     Dosage: 1 DF, TID
     Route: 048
  8. XANAX [Concomitant]
     Active Substance: ALPRAZOLAM
     Dosage: 1 DF, TID
     Route: 048

REACTIONS (3)
  - Muscular weakness [Not Recovered/Not Resolved]
  - Fall [Not Recovered/Not Resolved]
  - Arthropathy [Not Recovered/Not Resolved]

NARRATIVE: CASE EVENT DATE: 2018
